FAERS Safety Report 23108180 (Version 3)
Quarter: 2023Q4

REPORT INFORMATION
  Report Type: Report from Study
  Country: CN (occurrence: None)
  Receive Date: 20231026
  Receipt Date: 20231117
  Transmission Date: 20240110
  Serious: Yes (Life-Threatening, Hospitalization)
  Sender: FDA-Public Use
  Company Number: CN-ROCHE-3441965

PATIENT
  Age: 44 Year
  Sex: Female

DRUGS (5)
  1. ADO-TRASTUZUMAB EMTANSINE [Suspect]
     Active Substance: ADO-TRASTUZUMAB EMTANSINE
     Indication: Invasive ductal breast carcinoma
     Dosage: 18/JUL/2023 AND 08/AUG/2023
     Route: 065
     Dates: start: 20230626
  2. MAGNESIUM ISOGLYCYRRHIZINATE [Concomitant]
     Active Substance: MAGNESIUM ISOGLYCYRRHIZINATE
     Dates: start: 20230816, end: 20230830
  3. COMPOUND GLYCYRRHIZIN [DL-METHIONINE;GLYCINE;GLYCYRRHIZIC ACID] [Concomitant]
     Dosage: 2 TABLETS/TIME,
     Route: 048
     Dates: start: 20230816, end: 20230912
  4. SILIBININ [Concomitant]
     Active Substance: SILIBININ
     Dosage: 2 CAPSULES/TIME
     Route: 048
     Dates: start: 20230816, end: 20230912
  5. PHOSPHOLIPID [Concomitant]
     Active Substance: PHOSPHOLIPID
     Dosage: 13/SEP/2023
     Dates: start: 20230905, end: 20230912

REACTIONS (2)
  - Drug-induced liver injury [Recovering/Resolving]
  - Asthma [Recovered/Resolved]

NARRATIVE: CASE EVENT DATE: 20230717
